FAERS Safety Report 7843065-7 (Version None)
Quarter: 2011Q4

REPORT INFORMATION
  Report Type: 
  Country: None (occurrence: None)
  Receive Date: 20111025
  Receipt Date: 20111019
  Transmission Date: 20120403
  Serious: Yes (Hospitalization, Other)
  Sender: FDA-Public Use
  Company Number: AU-AMGEN-AUSSP2011043881

PATIENT
  Age: 82 Year
  Sex: Female
  Weight: 60 kg

DRUGS (8)
  1. ENDEP [Concomitant]
     Indication: ANXIETY
  2. PANAMAX [Concomitant]
  3. PROLIA [Suspect]
     Indication: OSTEOPOROSIS
     Dosage: 60 MG, UNK
     Route: 058
     Dates: start: 20110531
  4. LYRICA [Concomitant]
  5. TEMAZEPAM [Suspect]
  6. EZETIMIBE [Concomitant]
     Indication: HYPERLIPIDAEMIA
     Dosage: 10 MG, QD
     Dates: start: 20100108, end: 20110901
  7. COVERAM [Concomitant]
     Indication: HYPERTENSION
     Dosage: 5 MG, QD
     Route: 048
     Dates: start: 20100604, end: 20110901
  8. DEXAMETHASONE [Concomitant]

REACTIONS (1)
  - MANTLE CELL LYMPHOMA [None]
